FAERS Safety Report 8569917-0 (Version None)
Quarter: 2012Q3

REPORT INFORMATION
  Report Type: 
  Country: None (occurrence: None)
  Receive Date: 20120803
  Receipt Date: 20120402
  Transmission Date: 20120928
  Serious: No
  Sender: FDA-Public Use
  Company Number: US-ABBOTT-12P-163-0920623-00

PATIENT
  Sex: Female

DRUGS (1)
  1. NIASPAN [Suspect]
     Indication: PRODUCT USED FOR UNKNOWN INDICATION
     Dosage: AT BEDTIME
     Dates: start: 20120331, end: 20120401

REACTIONS (6)
  - OEDEMA PERIPHERAL [None]
  - GASTRIC DISORDER [None]
  - HYPERSENSITIVITY [None]
  - HEADACHE [None]
  - ERYTHEMA [None]
  - RASH MACULO-PAPULAR [None]
